FAERS Safety Report 12785121 (Version 4)
Quarter: 2016Q4

REPORT INFORMATION
  Report Type: Spontaneous
  Country: US (occurrence: US)
  Receive Date: 20160927
  Receipt Date: 20161130
  Transmission Date: 20170207
  Serious: Yes (Other)
  Sender: FDA-Public Use
  Company Number: US-BAYER-2016-186662

PATIENT
  Age: 45 Year
  Sex: Female
  Weight: 64.32 kg

DRUGS (4)
  1. COLACE [Concomitant]
     Active Substance: DOCUSATE SODIUM
  2. MIRENA [Suspect]
     Active Substance: LEVONORGESTREL
     Indication: MENORRHAGIA
     Dosage: 20 MCG/24HR, CONT
     Route: 015
     Dates: start: 20141120, end: 20160823
  3. MIRENA [Suspect]
     Active Substance: LEVONORGESTREL
     Indication: ANAEMIA
  4. IRON [Concomitant]
     Active Substance: IRON

REACTIONS (6)
  - Abdominal pain lower [None]
  - Ovarian cyst [None]
  - Vaginal haemorrhage [None]
  - Polymenorrhoea [None]
  - Uterine haemorrhage [None]
  - Uterine enlargement [None]

NARRATIVE: CASE EVENT DATE: 20141128
